FAERS Safety Report 12661355 (Version 2)
Quarter: 2016Q3

REPORT INFORMATION
  Report Type: Spontaneous
  Country: US (occurrence: US)
  Receive Date: 20160817
  Receipt Date: 20160901
  Transmission Date: 20161109
  Serious: No
  Sender: FDA-Public Use
  Company Number: US-RELYPSA-RLY2016000926

PATIENT
  Sex: Female

DRUGS (14)
  1. JANUVIA [Concomitant]
     Active Substance: SITAGLIPTIN PHOSPHATE
  2. LASIX [Concomitant]
     Active Substance: FUROSEMIDE
  3. ASPIRIN                            /00002701/ [Concomitant]
     Active Substance: ASPIRIN
  4. GLIPIZIDE. [Concomitant]
     Active Substance: GLIPIZIDE
  5. XANAX [Concomitant]
     Active Substance: ALPRAZOLAM
  6. VELTASSA [Suspect]
     Active Substance: PATIROMER
     Indication: HYPERKALAEMIA
     Dosage: 8.4 G, Q.D.
     Route: 048
     Dates: start: 20160519
  7. METOPROLOL TARTRATE. [Concomitant]
     Active Substance: METOPROLOL TARTRATE
  8. NEXIUM [Concomitant]
     Active Substance: ESOMEPRAZOLE MAGNESIUM
  9. SUCABITRIL VALSARTAN SODIUM HYDRATE [Concomitant]
     Active Substance: SACUBITRIL\VALSARTAN
  10. VITAMIN D2 [Concomitant]
     Active Substance: ERGOCALCIFEROL
  11. CLOPIDOGREL BISULFATE. [Concomitant]
     Active Substance: CLOPIDOGREL BISULFATE
  12. SODIUM POLYSTYRENE SULFONATE. [Concomitant]
     Active Substance: SODIUM POLYSTYRENE SULFONATE
  13. VIMPAT [Concomitant]
     Active Substance: LACOSAMIDE
  14. ZOLOFT [Concomitant]
     Active Substance: SERTRALINE HYDROCHLORIDE

REACTIONS (1)
  - Constipation [Not Recovered/Not Resolved]
